FAERS Safety Report 5086768-2 (Version None)
Quarter: 2006Q3

REPORT INFORMATION
  Report Type: 
  Country: None (occurrence: None)
  Receive Date: 20060823
  Receipt Date: 20060811
  Transmission Date: 20061208
  Serious: Yes (Other)
  Sender: FDA-Public Use
  Company Number: 2006AP03813

PATIENT
  Sex: Female

DRUGS (1)
  1. XYLOCAINE VISCOUS [Suspect]
     Indication: ANAESTHESIA
     Route: 049

REACTIONS (1)
  - BRONCHOSPASM [None]
